FAERS Safety Report 9223542 (Version 3)
Quarter: 2013Q2

REPORT INFORMATION
  Report Type: Spontaneous
  Country: CA (occurrence: CA)
  Receive Date: 20130410
  Receipt Date: 20130513
  Transmission Date: 20140414
  Serious: Yes (Other)
  Sender: FDA-Public Use
  Company Number: CA-ALEXION PHARMACEUTICALS INC.-A201300769

PATIENT
  Age: 76 Year
  Sex: Male

DRUGS (13)
  1. SOLIRIS 300MG [Suspect]
     Indication: PAROXYSMAL NOCTURNAL HAEMOGLOBINURIA
     Dosage: 600 MG, Q2W
     Route: 042
     Dates: start: 20110920, end: 20111011
  2. SOLIRIS 300MG [Suspect]
     Dosage: UNK
     Route: 042
     Dates: start: 20111018
  3. FOSAMAX [Concomitant]
     Dosage: UNK
     Route: 048
  4. CALCIUM [Concomitant]
     Route: 048
  5. CONVALLARIA MAJALIS\CRATAEGUS LAEVIGATA LEAF\PROXYPHYLLINE [Concomitant]
  6. ELIGARD [Concomitant]
     Dosage: EVERY 4 MONTHS DF
     Route: 030
     Dates: start: 2007
  7. VITAMIN B12 [Concomitant]
     Dosage: 1000 MEQ, QD
     Dates: start: 20100901
  8. GLUCOSAMINE/MSM [Concomitant]
     Dosage: 3 TABLETS DF, QD
     Route: 048
  9. PREDNISONE [Concomitant]
     Dosage: 30 MG, QD FOR SEVEN DAYS
     Route: 048
     Dates: start: 20110929
  10. PREDNISONE [Concomitant]
     Dosage: 10 MG, QD
     Route: 048
     Dates: end: 20111102
  11. PREDNISONE [Concomitant]
     Dosage: 10 MG, QD
     Route: 048
     Dates: start: 20111103
  12. MOXIFLOXACIN [Concomitant]
     Dosage: 400 MG, QD FOR SEVEN DAYS
     Route: 048
     Dates: start: 20110930, end: 20111010
  13. CASODEX [Concomitant]
     Dosage: 50 MG, QD

REACTIONS (4)
  - Cataract [Recovered/Resolved]
  - Blood pressure increased [Unknown]
  - Local swelling [Unknown]
  - Joint swelling [Unknown]
